FAERS Safety Report 8845349 (Version 3)
Quarter: 2012Q4

REPORT INFORMATION
  Report Type: 
  Country: US (occurrence: US)
  Receive Date: 20121017
  Receipt Date: 20121121
  Transmission Date: 20130627
  Serious: Yes (Death, Other)
  Sender: FDA-Public Use
  Company Number: US-PFIZER INC-2012256359

PATIENT
  Age: 26 Year
  Sex: Female
  Weight: 53.97 kg

DRUGS (1)
  1. REVATIO [Suspect]
     Indication: PULMONARY HYPERTENSION
     Dosage: 20 mg, 3x/day
     Route: 048
     Dates: start: 20100913

REACTIONS (7)
  - Right ventricular failure [Fatal]
  - Cardiac arrest [Fatal]
  - Myocardial infarction [Unknown]
  - Haemoptysis [Unknown]
  - Porphyria [Unknown]
  - Chest pain [Unknown]
  - Hypoglycaemia [Unknown]
